FAERS Safety Report 8383128 (Version 7)
Quarter: 2012Q4

REPORT INFORMATION
  Report Type: 
  Country: US (occurrence: US)
  Receive Date: 20120201
  Receipt Date: 20121010
  Transmission Date: 20130627
  Serious: Yes (Hospitalization, Disabling, Other)
  Sender: FDA-Public Use
  Company Number: US-009507513-1201USA04017

PATIENT

DRUGS (7)
  1. FOSAMAX [Suspect]
     Indication: OSTEOPOROSIS PROPHYLAXIS
     Route: 048
     Dates: start: 199605
  2. FOSAMAX [Suspect]
     Dosage: 70 mg, UNK
     Route: 048
     Dates: start: 20040311, end: 20100302
  3. FOSAMAX D [Suspect]
     Indication: OSTEOPOROSIS PROPHYLAXIS
     Dosage: 70mg/2800
     Route: 048
     Dates: end: 20100302
  4. FOSAMAX [Suspect]
     Dosage: 70 mg, UNK
     Route: 048
  5. SYNTHROID [Concomitant]
     Indication: HYPOTHYROIDISM
     Dates: start: 1971
  6. ESTROGENS, CONJUGATED\PROGESTERONE [Concomitant]
     Indication: HORMONE REPLACEMENT THERAPY
     Dates: start: 1993, end: 2007
  7. CALCIUM (UNSPECIFIED) [Concomitant]

REACTIONS (19)
  - Femur fracture [Unknown]
  - Neuropathy peripheral [Unknown]
  - Sinus disorder [Unknown]
  - Anxiety [Unknown]
  - Foot fracture [Unknown]
  - Migraine [Unknown]
  - Hyperlipidaemia [Unknown]
  - Foot fracture [Unknown]
  - Depression [Unknown]
  - Fall [Unknown]
  - Intervertebral disc disorder [Unknown]
  - Arthritis [Unknown]
  - Panic attack [Unknown]
  - Hypertension [Unknown]
  - Wound dehiscence [Unknown]
  - Overdose [Unknown]
  - Tooth disorder [Unknown]
  - Osteoporosis [Unknown]
  - Arthralgia [Unknown]
